FAERS Safety Report 4319955-9 (Version None)
Quarter: 2004Q1

REPORT INFORMATION
  Report Type: 
  Country: None (occurrence: None)
  Receive Date: 20040317
  Receipt Date: 20040310
  Transmission Date: 20041129
  Serious: Yes (Death, Hospitalization)
  Sender: FDA-Public Use
  Company Number: 2004UW04189

PATIENT
  Age: 65 Year
  Sex: Male
  Weight: 62.3 kg

DRUGS (7)
  1. IRESSA [Suspect]
     Indication: NEOPLASM MALIGNANT
     Dosage: 250 MG DAILY PO
     Route: 048
     Dates: start: 20030909, end: 20040219
  2. CARDIZEM [Concomitant]
  3. DIGOXIN [Concomitant]
  4. LOPRESSOR [Concomitant]
  5. ASPIRIN [Concomitant]
  6. COLACE [Concomitant]
  7. TYLENOL W/ CODEINE NO. 3 [Concomitant]

REACTIONS (8)
  - BRADYCARDIA [None]
  - CARDIAC ARREST [None]
  - COMA [None]
  - PNEUMONIA [None]
  - PYREXIA [None]
  - RESPIRATORY ARREST [None]
  - SKIN BLEEDING [None]
  - SKIN DISORDER [None]
